FAERS Safety Report 17285660 (Version 1)
Quarter: 2020Q1

REPORT INFORMATION
  Report Type: Spontaneous
  Country: CN (occurrence: CN)
  Receive Date: 20200117
  Receipt Date: 20200117
  Transmission Date: 20200409
  Serious: Yes (Hospitalization)
  Sender: FDA-Public Use
  Company Number: CN-BAXTER-2020BAX000874

PATIENT
  Age: 36 Year
  Sex: Female
  Weight: 60 kg

DRUGS (6)
  1. 0.9% SODIUM CHLORIDE INJECTION [Suspect]
     Active Substance: SODIUM CHLORIDE
     Dosage: DOSE RE-INTRODUCED, TAXOTERE+ 0.9% SODIUM CHLORIDE
     Route: 041
  2. 0.9% SODIUM CHLORIDE INJECTION [Suspect]
     Active Substance: SODIUM CHLORIDE
     Indication: MEDICATION DILUTION
     Dosage: TAXOTERE 120 MG+ 0.9% SODIUM CHLORIDE, DAY 1
     Route: 041
     Dates: start: 20190905, end: 20190905
  3. TAXOTERE [Suspect]
     Active Substance: DOCETAXEL
     Dosage: DOSE RE-INTRODUCED, TAXOTERE+0.9% SODIUM CHLORIDE
     Route: 041
  4. ENDOXAN [Suspect]
     Active Substance: CYCLOPHOSPHAMIDE
     Indication: BREAST CANCER
     Dosage: DAY 2
     Route: 042
     Dates: start: 20190906, end: 20190906
  5. TAXOTERE [Suspect]
     Active Substance: DOCETAXEL
     Indication: BREAST CANCER
     Dosage: TAXOTERE 120 MG+0.9% SODIUM CHLORIDE, DAY 1
     Route: 041
     Dates: start: 20190905, end: 20190905
  6. ENDOXAN [Suspect]
     Active Substance: CYCLOPHOSPHAMIDE
     Dosage: DOSE RE-INTRODUCED
     Route: 042

REACTIONS (1)
  - Bone marrow failure [Recovering/Resolving]

NARRATIVE: CASE EVENT DATE: 20190913
